FAERS Safety Report 5614268-7 (Version None)
Quarter: 2008Q1

REPORT INFORMATION
  Report Type: 
  Country: None (occurrence: None)
  Receive Date: 20080205
  Receipt Date: 20080129
  Transmission Date: 20080703
  Serious: Yes (Other)
  Sender: FDA-Public Use
  Company Number: FR-PFIZER INC-2007081714

PATIENT
  Sex: Female

DRUGS (2)
  1. XALATAN [Suspect]
  2. XALACOM [Suspect]
     Indication: GLAUCOMA
     Dosage: DAILY DOSE:1DROP-FREQ:INTERVAL: EVERY DAY

REACTIONS (4)
  - DRUG INEFFECTIVE [None]
  - EYE IRRITATION [None]
  - PARAESTHESIA [None]
  - VISUAL FIELD DEFECT [None]
